FAERS Safety Report 4328743-9 (Version None)
Quarter: 2004Q1

REPORT INFORMATION
  Report Type: 
  Country: None (occurrence: None)
  Receive Date: 20040329
  Receipt Date: 20040108
  Transmission Date: 20041129
  Serious: No
  Sender: FDA-Public Use
  Company Number: 04P-163-0246641-00

PATIENT
  Age: 33 Year
  Sex: Male
  Weight: 154.223 kg

DRUGS (7)
  1. HUMIRA [Suspect]
     Indication: RHEUMATOID ARTHRITIS
     Dosage: 40 MG, 1 IN 2 WK,  SUBCUTANEOUS
     Route: 058
     Dates: start: 20030601, end: 20031201
  2. METHOTREXATE [Concomitant]
  3. VICODIN [Concomitant]
  4. FOLIC ACID [Concomitant]
  5. MULTI-VITAMINS [Concomitant]
  6. ASCORBIC ACID [Concomitant]
  7. CALCIUM + D [Concomitant]

REACTIONS (1)
  - DRUG INEFFECTIVE [None]
